FAERS Safety Report 17267375 (Version 1)
Quarter: 2020Q1

REPORT INFORMATION
  Report Type: Spontaneous
  Country: US (occurrence: US)
  Receive Date: 20200111
  Receipt Date: 20200111
  Transmission Date: 20200409
  Serious: Yes (Other)
  Sender: FDA-Public Use
  Company Number: None

PATIENT
  Age: 25 Year
  Sex: Female
  Weight: 81.65 kg

DRUGS (1)
  1. PARAGARD T 380A [Suspect]
     Active Substance: COPPER

REACTIONS (4)
  - Dysmenorrhoea [None]
  - Complication associated with device [None]
  - Menorrhagia [None]
  - Pain [None]

NARRATIVE: CASE EVENT DATE: 20191001
